FAERS Safety Report 8024167-1 (Version None)
Quarter: 2012Q1

REPORT INFORMATION
  Report Type: 
  Country: None (occurrence: None)
  Receive Date: 20120105
  Receipt Date: 20120103
  Transmission Date: 20120608
  Serious: Yes (Life-Threatening, Other)
  Sender: FDA-Public Use
  Company Number: CA-PFIZER INC-2008019760

PATIENT
  Age: 43 Year
  Sex: Female
  Weight: 65.8 kg

DRUGS (5)
  1. LYRICA [Suspect]
     Dosage: 75 MG, 2X/DAY
     Dates: start: 20070730, end: 20070810
  2. LYRICA [Suspect]
     Dosage: 150 MG, 2X/DAY
     Dates: start: 20070908, end: 20071010
  3. LYRICA [Suspect]
     Dosage: 75MG IN THE MORNING AND 150MG AT NIGHT
     Dates: start: 20070811, end: 20070907
  4. LYRICA [Suspect]
     Indication: FIBROMYALGIA
     Dosage: 75 MG, 1X/DAY
     Route: 048
     Dates: start: 20070717, end: 20070729
  5. ZYTRAM [Concomitant]
     Dosage: UNK
     Dates: start: 20070717

REACTIONS (10)
  - SUICIDAL IDEATION [None]
  - INSOMNIA [None]
  - CONSTIPATION [None]
  - TONGUE BITING [None]
  - MUSCLE TWITCHING [None]
  - WEIGHT INCREASED [None]
  - CONVULSION [None]
  - DERMATITIS BULLOUS [None]
  - OEDEMA PERIPHERAL [None]
  - TREMOR [None]
